FAERS Safety Report 8761930 (Version 3)
Quarter: 2012Q4

REPORT INFORMATION
  Report Type: 
  Country: JP (occurrence: JP)
  Receive Date: 20120830
  Receipt Date: 20121206
  Transmission Date: 20130627
  Serious: Yes (Other)
  Sender: FDA-Public Use
  Company Number: CHPA2012JP019045

PATIENT
  Age: 69 Year
  Sex: Male

DRUGS (1)
  1. NICOTINELL [Suspect]
     Indication: SMOKING CESSATION THERAPY
     Dosage: 52.5 mg, QD
     Route: 062
     Dates: start: 201208, end: 201208

REACTIONS (1)
  - Urticaria [Recovered/Resolved]
